FAERS Safety Report 18591798 (Version 1)
Quarter: 2020Q4

REPORT INFORMATION
  Report Type: Report from Study
  Country: EG (occurrence: EG)
  Receive Date: 20201208
  Receipt Date: 20201208
  Transmission Date: 20210114
  Serious: Yes (Other)
  Sender: FDA-Public Use
  Company Number: EG-SEAGEN-2019SGN02856

PATIENT
  Sex: Female

DRUGS (1)
  1. BRENTUXIMAB VEDOTIN [Suspect]
     Active Substance: BRENTUXIMAB VEDOTIN
     Indication: HODGKIN^S DISEASE REFRACTORY
     Dosage: UNK, Q3WEEKS
     Route: 042
     Dates: start: 20190701

REACTIONS (9)
  - Hypotension [Unknown]
  - Haemoglobin decreased [Unknown]
  - Leukopenia [Unknown]
  - Neuropathy peripheral [Unknown]
  - Blood creatinine increased [Unknown]
  - Dizziness [Unknown]
  - Anaemia [Unknown]
  - White blood cell count decreased [Unknown]
  - Weight decreased [Unknown]
